FAERS Safety Report 5757414-7 (Version None)
Quarter: 2008Q2

REPORT INFORMATION
  Report Type: 
  Country: None (occurrence: None)
  Receive Date: 20080603
  Receipt Date: 20080528
  Transmission Date: 20081010
  Serious: Yes (Death, Hospitalization)
  Sender: FDA-Public Use
  Company Number: US-SANOFI-SYNTHELABO-F03200800069

PATIENT
  Sex: Male
  Weight: 106.1 kg

DRUGS (9)
  1. OXALIPLATIN [Suspect]
     Indication: COLORECTAL CANCER
     Route: 042
     Dates: start: 20080428, end: 20080428
  2. ATIVAN [Concomitant]
     Indication: DRUG USE FOR UNKNOWN INDICATION
     Dosage: UNK
     Route: 048
  3. METOPROLOL TARTRATE [Concomitant]
     Indication: DRUG USE FOR UNKNOWN INDICATION
     Dosage: UNK
     Route: 048
     Dates: start: 20080402
  4. VICODIN [Concomitant]
     Indication: DRUG USE FOR UNKNOWN INDICATION
     Dosage: UNK
     Route: 048
  5. CYMBALTA [Concomitant]
     Indication: DRUG USE FOR UNKNOWN INDICATION
     Dosage: UNK
     Route: 048
  6. LYRICA [Concomitant]
     Indication: DRUG USE FOR UNKNOWN INDICATION
     Dosage: UNK
     Route: 048
  7. FLUOROURACIL [Suspect]
     Indication: COLORECTAL CANCER
     Dosage: 889 MG BOLUS, 5336 MG CONTINUOUS INFUSION EVERY 2 WEEKS
     Route: 042
     Dates: start: 20080428, end: 20080430
  8. AG-013,736 [Suspect]
     Indication: COLORECTAL CANCER
     Route: 048
     Dates: start: 20080331, end: 20080505
  9. LEUCOVORIN CALCIUM [Suspect]
     Indication: COLORECTAL CANCER
     Route: 042
     Dates: start: 20080428, end: 20080428

REACTIONS (3)
  - DEHYDRATION [None]
  - DIARRHOEA [None]
  - HAEMATOMA [None]
